FAERS Safety Report 9553762 (Version 1)
Quarter: 2013Q3

REPORT INFORMATION
  Report Type: Spontaneous
  Country: US (occurrence: US)
  Receive Date: 20130925
  Receipt Date: 20130925
  Transmission Date: 20140515
  Serious: No
  Sender: FDA-Public Use
  Company Number: US-FOUGERA-2013FO000150

PATIENT
  Sex: Female

DRUGS (1)
  1. LIDOCAINE AND; PRILOCAINE [Suspect]
     Indication: PAIN
     Route: 061

REACTIONS (3)
  - Application site pain [Recovered/Resolved]
  - Expired drug administered [Unknown]
  - Off label use [None]
